FAERS Safety Report 20437022 (Version 1)
Quarter: 2022Q1

REPORT INFORMATION
  Report Type: Spontaneous
  Country: US (occurrence: US)
  Receive Date: 20220207
  Receipt Date: 20220207
  Transmission Date: 20220424
  Serious: No
  Sender: FDA-Public Use
  Company Number: US-SA-SAC20220204000207

PATIENT
  Age: 78 Year
  Sex: Female

DRUGS (1)
  1. AUBAGIO [Suspect]
     Active Substance: TERIFLUNOMIDE
     Indication: Bone disorder
     Dosage: 14 MG, QD
     Route: 048

REACTIONS (7)
  - Pruritus [Unknown]
  - Rash [Unknown]
  - Urticaria [Unknown]
  - Dehydration [Unknown]
  - Pigmentation disorder [Unknown]
  - Alopecia [Unknown]
  - Product use in unapproved indication [Unknown]
